FAERS Safety Report 5914620-6 (Version None)
Quarter: 2008Q4

REPORT INFORMATION
  Report Type: 
  Country: None (occurrence: None)
  Receive Date: 20081008
  Receipt Date: 20080923
  Transmission Date: 20090506
  Serious: Yes (Life-Threatening, Hospitalization)
  Sender: FDA-Public Use
  Company Number: 238947J08USA

PATIENT
  Age: 10 Year
  Sex: Female
  Weight: 33 kg

DRUGS (1)
  1. REBIF [Suspect]
     Indication: OFF LABEL USE
     Dosage: 44 MCG, 3 IN 1 WEEKS, SUBCUTANEOUS
     Route: 058
     Dates: start: 20080619

REACTIONS (5)
  - CONVULSION [None]
  - DYSPHAGIA [None]
  - HEADACHE [None]
  - KIDNEY INFECTION [None]
  - MULTIPLE SCLEROSIS [None]
